FAERS Safety Report 21524527 (Version 4)
Quarter: 2023Q1

REPORT INFORMATION
  Report Type: Spontaneous
  Country: CA (occurrence: CA)
  Receive Date: 20221029
  Receipt Date: 20230104
  Transmission Date: 20230418
  Serious: Yes (Hospitalization)
  Sender: FDA-Public Use
  Company Number: CA-CELLTRION INC.-2022CA018232

PATIENT

DRUGS (3)
  1. INFLECTRA [Suspect]
     Active Substance: INFLIXIMAB-DYYB
     Indication: Colitis ulcerative
     Dosage: 600 MG, 0, 2, 6 WEEKS, THEN EVERY 8 WEEKS
     Route: 042
     Dates: start: 20221014, end: 20221028
  2. PREDNISONE [Concomitant]
     Active Substance: PREDNISONE
     Dosage: 40 MG, DAILY
     Route: 065
  3. XELJANZ [Concomitant]
     Active Substance: TOFACITINIB CITRATE
     Dosage: 10 MG, 2X/DAY
     Dates: start: 20221103

REACTIONS (5)
  - Illness [Unknown]
  - Drug ineffective [Unknown]
  - Mental disorder [Not Recovered/Not Resolved]
  - Lethargy [Not Recovered/Not Resolved]
  - Stress [Unknown]

NARRATIVE: CASE EVENT DATE: 20221001
